FAERS Safety Report 4525916-7 (Version None)
Quarter: 2004Q4

REPORT INFORMATION
  Report Type: 
  Country: None (occurrence: None)
  Receive Date: 20041213
  Receipt Date: 20041101
  Transmission Date: 20050328
  Serious: Yes (Life-Threatening)
  Sender: FDA-Public Use
  Company Number: US-MERCK-0411USA00191

PATIENT
  Age: 72 Year
  Sex: Female

DRUGS (6)
  1. VIOXX [Suspect]
     Indication: ANALGESIC EFFECT
     Route: 048
     Dates: start: 20020101, end: 20040930
  2. LOZOL [Concomitant]
     Route: 065
  3. ZESTRIL [Concomitant]
     Route: 065
  4. AMARYL [Concomitant]
     Route: 065
  5. LEVOXYL [Concomitant]
     Route: 065
  6. LIPITOR [Concomitant]
     Route: 065

REACTIONS (3)
  - CARDIOMEGALY [None]
  - FATIGUE [None]
  - OEDEMA PERIPHERAL [None]
